FAERS Safety Report 7912133-3 (Version None)
Quarter: 2011Q4

REPORT INFORMATION
  Report Type: 
  Country: None (occurrence: None)
  Receive Date: 20111114
  Receipt Date: 20111103
  Transmission Date: 20120403
  Serious: Yes (Death)
  Sender: FDA-Public Use
  Company Number: US-ALEXION-A201100633

PATIENT
  Sex: Male

DRUGS (1)
  1. SOLIRIS [Suspect]
     Indication: PAROXYSMAL NOCTURNAL HAEMOGLOBINURIA
     Dosage: 900 MG UNK
     Route: 042
     Dates: end: 20110420

REACTIONS (3)
  - HEADACHE [None]
  - MENINGOCOCCAL SEPSIS [None]
  - HAEMOGLOBIN DECREASED [None]
